FAERS Safety Report 8055767-0 (Version None)
Quarter: 2012Q1

REPORT INFORMATION
  Report Type: 
  Country: None (occurrence: None)
  Receive Date: 20120119
  Receipt Date: 20120112
  Transmission Date: 20120608
  Serious: Yes (Hospitalization)
  Sender: FDA-Public Use
  Company Number: KR-SANOFI-AVENTIS-2012SA000936

PATIENT
  Age: 52 Year
  Sex: Female
  Weight: 57.6 kg

DRUGS (17)
  1. SODIUM BICARBONATE [Concomitant]
     Dates: start: 20111221, end: 20111224
  2. VASELINE [Concomitant]
     Dates: start: 20111224
  3. BLINDED THERAPY [Suspect]
     Indication: BREAST CANCER
     Route: 042
     Dates: start: 20111013, end: 20111013
  4. ULTRACET [Concomitant]
  5. TAGAMET [Concomitant]
     Dates: start: 20111215, end: 20111215
  6. PROSPAN [Concomitant]
  7. TANTUM [Concomitant]
     Dates: start: 20111215
  8. SCOPOLAMINE [Concomitant]
     Dates: start: 20111221, end: 20111221
  9. MAGNESIUM [Concomitant]
  10. NEXIUM [Concomitant]
  11. GLIPTIDE [Concomitant]
  12. DEXAMETHASONE TAB [Concomitant]
     Dates: start: 20111214, end: 20111216
  13. DOCETAXEL [Suspect]
     Route: 041
     Dates: start: 20111215, end: 20111215
  14. BLINDED THERAPY [Suspect]
     Route: 042
     Dates: start: 20111215, end: 20111215
  15. SURFOLASE [Concomitant]
     Dates: start: 20111222
  16. DOCETAXEL [Suspect]
     Indication: BREAST CANCER
     Route: 041
     Dates: start: 20111013, end: 20111013
  17. ALOXI [Concomitant]
     Dates: start: 20111215, end: 20111215

REACTIONS (1)
  - MOOD ALTERED [None]
